FAERS Safety Report 8565794 (Version 2)
Quarter: 2012Q4

REPORT INFORMATION
  Report Type: 
  Country: US (occurrence: None)
  Receive Date: 20120511
  Receipt Date: 20120821
  Transmission Date: 20130627
  Serious: Yes (Other)
  Sender: FDA-Public Use
  Company Number: AUR-APL-2012-02127

PATIENT
  Age: 64 Year
  Sex: Female
  Weight: 84.35 kg

DRUGS (23)
  1. VENLAFAXINE [Suspect]
     Indication: DEPRESSION
     Dosage: (100 MG, 1 D),ORAL
     Route: 048
     Dates: start: 2000
  2. VENLAFAXINE [Suspect]
     Indication: PANIC ATTACK
     Dosage: (100 MG, 1 D),ORAL
     Route: 048
     Dates: start: 2000
  3. BISOPROLOL FUMARATE [Concomitant]
  4. LOSARTAN POTASSIUM [Concomitant]
  5. LIPITOR [Concomitant]
  6. ZETIA [Concomitant]
  7. ATORVASTATIN (ATORVASTATIN) [Concomitant]
  8. FISH OIL (FISH OIL) [Concomitant]
  9. ZYRTEC (CETIRIZINE HYDROCHLORIDE) [Concomitant]
  10. CO-Q-10 (UBIDECARENONE) [Concomitant]
  11. NITROLINGUAL (GLYCERYL TRINITRATE) [Concomitant]
  12. NEXIUM (ESOMEPRAZOLE) [Concomitant]
  13. CARAFATE (SUCRALFATE) [Concomitant]
  14. ASPIRIN (ACETYLSALICYLIC ACID) [Concomitant]
  15. EFFIENT (PRASUGREL HYDROCHLORIDE) [Concomitant]
  16. PLAVIX (CLOPIDOGREL) [Concomitant]
  17. HYDROXYZINE HYDROCHLORIDE (HYDROXYZINE HYDROCHLORIDE) [Concomitant]
  18. NIASPAN (NICOTINIC ACID) [Concomitant]
  19. COZAAR (LOSARTAN POTASSIUM) [Concomitant]
  20. SIMVASTATIN (SIMVASTATIN) [Concomitant]
  21. ISOSORBIDE MONONITRATE (ISOSORBIDE MONONITRATE) [Concomitant]
  22. PRASUGREL (PRASUGREL) [Concomitant]
  23. NITROSTAT (GLYCERYL TRINITRATE) [Concomitant]

REACTIONS (3)
  - Atrioventricular block [None]
  - Chest pain [None]
  - Syncope [None]
